FAERS Safety Report 5621299-X (Version None)
Quarter: 2008Q1

REPORT INFORMATION
  Report Type: 
  Country: None (occurrence: None)
  Receive Date: 20080211
  Receipt Date: 20080128
  Transmission Date: 20080703
  Serious: Yes (Other)
  Sender: FDA-Public Use
  Company Number: IN-JNJFOC-20080107606

PATIENT
  Age: 51 Year
  Sex: Male

DRUGS (4)
  1. TOPIRAMATE [Suspect]
     Indication: EPILEPSY
  2. CARBAMAZEPINE [Concomitant]
     Indication: EPILEPSY
  3. PHENYTOIN SODIUM [Concomitant]
     Indication: EPILEPSY
  4. PHENOBARBITONE [Concomitant]
     Indication: EPILEPSY

REACTIONS (4)
  - ANGLE CLOSURE GLAUCOMA [None]
  - CATARACT [None]
  - CHOROIDAL EFFUSION [None]
  - CORNEAL TOUCH [None]
